FAERS Safety Report 8592944-4 (Version None)
Quarter: 2012Q3

REPORT INFORMATION
  Report Type: 
  Country: None (occurrence: None)
  Receive Date: 20120814
  Receipt Date: 20120810
  Transmission Date: 20120928
  Serious: Yes (Other)
  Sender: FDA-Public Use
  Company Number: US-TEVA-348812USA

PATIENT
  Sex: Female

DRUGS (3)
  1. CLARAVIS [Suspect]
     Dosage: 60 MILLIGRAM DAILY;
     Route: 048
     Dates: start: 20120305, end: 20120712
  2. LEVONORGESTREL [Suspect]
  3. ORAL CONTRACEPTIVE NOS [Concomitant]

REACTIONS (4)
  - UNINTENDED PREGNANCY [None]
  - PREGNANCY AFTER POST COITAL CONTRACEPTION [None]
  - DRUG INEFFECTIVE [None]
  - INAPPROPRIATE SCHEDULE OF DRUG ADMINISTRATION [None]
